FAERS Safety Report 8048457-1 (Version None)
Quarter: 2012Q1

REPORT INFORMATION
  Report Type: 
  Country: None (occurrence: None)
  Receive Date: 20120117
  Receipt Date: 20120111
  Transmission Date: 20120608
  Serious: No
  Sender: FDA-Public Use
  Company Number: US-PFIZER INC-2012008926

PATIENT
  Sex: Male
  Weight: 86.17 kg

DRUGS (2)
  1. GABAPENTIN [Suspect]
     Indication: BONE DISORDER
  2. GABAPENTIN [Suspect]
     Indication: NEUROPATHY PERIPHERAL
     Dosage: 300 MG
     Route: 048
     Dates: start: 20110922

REACTIONS (1)
  - DYSPNOEA [None]
